FAERS Safety Report 7999662 (Version 4)
Quarter: 2013Q1

REPORT INFORMATION
  Report Type: Spontaneous
  Country: US (occurrence: US)
  Receive Date: 20110621
  Receipt Date: 20130128
  Transmission Date: 20140127
  Serious: Yes (Hospitalization, Other)
  Sender: FDA-Public Use
  Company Number: US-ASTRAZENECA-2011SE36136

PATIENT
  Age: 63 Year
  Sex: Female

DRUGS (3)
  1. PULMICORT FLEXHALER [Suspect]
     Indication: CHRONIC OBSTRUCTIVE PULMONARY DISEASE
     Dosage: 1 PUFF BID
     Route: 055
  2. PULMICORT FLEXHALER [Suspect]
     Indication: EMPHYSEMA
     Dosage: 1 PUFF BID
     Route: 055
  3. AZMACORT [Concomitant]

REACTIONS (5)
  - Emphysema [Unknown]
  - Activities of daily living impaired [Unknown]
  - Chronic obstructive pulmonary disease [Unknown]
  - Malaise [Unknown]
  - Influenza [Unknown]
